FAERS Safety Report 6801172-1 (Version None)
Quarter: 2010Q2

REPORT INFORMATION
  Report Type: 
  Country: None (occurrence: None)
  Receive Date: 20100629
  Receipt Date: 20100617
  Transmission Date: 20101027
  Serious: Yes (Hospitalization)
  Sender: FDA-Public Use
  Company Number: IT-PFIZER INC-2010052736

PATIENT
  Age: 11 Year
  Sex: Male

DRUGS (1)
  1. TROZOCINA [Suspect]
     Indication: PHARYNGOTONSILLITIS
     Dosage: 10 MG/KG, DAILY
     Route: 048
     Dates: start: 20090316, end: 20090319

REACTIONS (2)
  - RENAL FAILURE ACUTE [None]
  - RENAL TUBULAR NECROSIS [None]
